FAERS Safety Report 7549048-9 (Version None)
Quarter: 2011Q2

REPORT INFORMATION
  Report Type: 
  Country: None (occurrence: None)
  Receive Date: 20110615
  Receipt Date: 20110604
  Transmission Date: 20111010
  Serious: Yes (Hospitalization)
  Sender: FDA-Public Use
  Company Number: MX-ROCHE-782089

PATIENT
  Sex: Female

DRUGS (2)
  1. TRASTUZUMAB [Suspect]
     Indication: BREAST CANCER
     Dosage: FREQUENCY: EVERY 8 DAYS
     Route: 042
     Dates: start: 20101101
  2. CHLORPHENIRAMINE MALEATE [Concomitant]
     Dosage: FREQUENCY: EVERY 21 DAYS
     Route: 042
     Dates: start: 20110201

REACTIONS (7)
  - BRONCHITIS [None]
  - NAUSEA [None]
  - ARTHRALGIA [None]
  - VOMITING [None]
  - PULMONARY OEDEMA [None]
  - DIARRHOEA [None]
  - COUGH [None]
